FAERS Safety Report 18386443 (Version 1)
Quarter: 2020Q4

REPORT INFORMATION
  Report Type: Spontaneous
  Country: US (occurrence: US)
  Receive Date: 20201014
  Receipt Date: 20201014
  Transmission Date: 20210114
  Serious: Yes (Other)
  Sender: FDA-Public Use
  Company Number: None

PATIENT
  Age: 73 Year
  Sex: Female
  Weight: 58.5 kg

DRUGS (2)
  1. EVENITY [Concomitant]
     Active Substance: ROMOSOZUMAB-AQQG
     Dates: start: 20201013, end: 20201013
  2. EVENITY [Suspect]
     Active Substance: ROMOSOZUMAB-AQQG
     Indication: OSTEOPOROSIS
     Dosage: ?          OTHER FREQUENCY:MONTHLY;?
     Route: 058
     Dates: start: 20201013, end: 20201013

REACTIONS (3)
  - Injection site swelling [None]
  - Injection site nodule [None]
  - Injection site erythema [None]

NARRATIVE: CASE EVENT DATE: 20201014
